FAERS Safety Report 14465787 (Version 3)
Quarter: 2018Q1

REPORT INFORMATION
  Report Type: Spontaneous
  Country: US (occurrence: US)
  Receive Date: 20180131
  Receipt Date: 20180323
  Transmission Date: 20180509
  Serious: No
  Sender: FDA-Public Use
  Company Number: US-ASTRAZENECA-2018SE11653

PATIENT
  Age: 27523 Day
  Sex: Female
  Weight: 93.4 kg

DRUGS (2)
  1. BYDUREON BCISE [Suspect]
     Active Substance: EXENATIDE
     Indication: TYPE 2 DIABETES MELLITUS
     Route: 065
     Dates: start: 20180126
  2. BYDUREON [Suspect]
     Active Substance: EXENATIDE
     Indication: TYPE 2 DIABETES MELLITUS
     Route: 058

REACTIONS (14)
  - Product quality issue [Recovered/Resolved]
  - Underdose [Not Recovered/Not Resolved]
  - Blood glucose fluctuation [Unknown]
  - Malaise [Unknown]
  - Wrong technique in device usage process [Recovered/Resolved]
  - Blood glucose increased [Unknown]
  - Injection site scar [Unknown]
  - Injection site bruising [Unknown]
  - Injection site extravasation [Unknown]
  - Drug dose omission [Unknown]
  - Blood glucose abnormal [Unknown]
  - Injection site pain [Unknown]
  - Incorrect disposal of product [Recovered/Resolved]
  - Intentional product misuse [Unknown]

NARRATIVE: CASE EVENT DATE: 20180124
